FAERS Safety Report 17147820 (Version 1)
Quarter: 2019Q4

REPORT INFORMATION
  Report Type: Spontaneous
  Country: US (occurrence: US)
  Receive Date: 20191212
  Receipt Date: 20191212
  Transmission Date: 20200122
  Serious: No
  Sender: FDA-Public Use
  Company Number: US-BAUSCH-BL-2019-061992

PATIENT
  Age: 69 Year
  Sex: Female

DRUGS (4)
  1. XANAX [Concomitant]
     Active Substance: ALPRAZOLAM
     Indication: PRODUCT USED FOR UNKNOWN INDICATION
  2. FLUOROURACIL CREAM 5% [Suspect]
     Active Substance: FLUOROURACIL
     Indication: ACTINIC KERATOSIS
     Dosage: START DATE: TWO WEEKS AGO; ONCE EVERY 2 TO 3 DAYS ON FOREHEAD AND ONE SPOT ON THE LIPS
     Route: 061
     Dates: start: 201910
  3. NATURE-THROID [Concomitant]
     Active Substance: THYROID, PORCINE
     Indication: PRODUCT USED FOR UNKNOWN INDICATION
  4. VALACYCLOVIR [Concomitant]
     Active Substance: VALACYCLOVIR HYDROCHLORIDE
     Indication: PRODUCT USED FOR UNKNOWN INDICATION

REACTIONS (6)
  - Application site erythema [Not Recovered/Not Resolved]
  - Application site erosion [Not Recovered/Not Resolved]
  - Product prescribing error [Unknown]
  - Inappropriate schedule of product administration [Unknown]
  - Dry skin [Not Recovered/Not Resolved]
  - Application site scab [Not Recovered/Not Resolved]

NARRATIVE: CASE EVENT DATE: 201910
